FAERS Safety Report 10709564 (Version 1)
Quarter: 2015Q1

REPORT INFORMATION
  Report Type: Spontaneous
  Country: US (occurrence: None)
  Receive Date: 20150113
  Receipt Date: 20150113
  Transmission Date: 20150721
  Serious: Yes (Other)
  Sender: FDA-Public Use
  Company Number: None

PATIENT
  Age: 57 Year
  Sex: Male
  Weight: 129.28 kg

DRUGS (1)
  1. BYDUREON [Suspect]
     Active Substance: EXENATIDE
     Indication: BLOOD GLUCOSE ABNORMAL
     Dosage: GIVEN INTO/UNDER THE SKIN
     Dates: start: 20141109, end: 20141231

REACTIONS (2)
  - Injection site nodule [None]
  - Tenderness [None]

NARRATIVE: CASE EVENT DATE: 20141231
